FAERS Safety Report 9490655 (Version 2)
Quarter: 2013Q3

REPORT INFORMATION
  Report Type: Spontaneous
  Country: GB (occurrence: GB)
  Receive Date: 20130830
  Receipt Date: 20130830
  Transmission Date: 20140515
  Serious: Yes (Hospitalization)
  Sender: FDA-Public Use
  Company Number: PHFR2013GB002557

PATIENT
  Age: 76 Year
  Sex: Female

DRUGS (2)
  1. CLOZARIL [Suspect]
     Indication: SCHIZOPHRENIA
     Dosage: UNK
     Route: 048
     Dates: start: 20110707, end: 201304
  2. CLOZARIL [Suspect]
     Dosage: UNK
     Dates: start: 20130630

REACTIONS (3)
  - Thinking abnormal [Recovered/Resolved]
  - Delusion [Recovering/Resolving]
  - Mental impairment [Recovering/Resolving]
